FAERS Safety Report 7759198-X (Version None)
Quarter: 2011Q3

REPORT INFORMATION
  Report Type: 
  Country: None (occurrence: None)
  Receive Date: 20110919
  Receipt Date: 20110915
  Transmission Date: 20111222
  Serious: Yes (Hospitalization)
  Sender: FDA-Public Use
  Company Number: NZ-B.I. PHARMACEUTICALS,INC./RIDGEFIELD-2011-AU-01242AU

PATIENT
  Age: 84 Year
  Sex: Male

DRUGS (1)
  1. PRADAXA [Suspect]
     Dosage: 300 MG

REACTIONS (5)
  - FEMORAL NECK FRACTURE [None]
  - HAEMORRHAGE [None]
  - HAEMOGLOBIN DECREASED [None]
  - COAGULATION TEST ABNORMAL [None]
  - STRESS ULCER [None]
